FAERS Safety Report 20767309 (Version 2)
Quarter: 2022Q2

REPORT INFORMATION
  Report Type: Spontaneous
  Country: DK (occurrence: DK)
  Receive Date: 20220429
  Receipt Date: 20220511
  Transmission Date: 20220721
  Serious: Yes (Other)
  Sender: FDA-Public Use
  Company Number: None

PATIENT
  Age: 82 Year
  Sex: Male
  Weight: 74 kg

DRUGS (1)
  1. ZOLEDRONIC ACID [Suspect]
     Active Substance: ZOLEDRONIC ACID
     Indication: Bone disorder
     Dosage: DOSE: 3-4 MG WITH UNKNOWN INTERVAL. STRENGTH: UNKNOWN,DURATION 3 YEARS
     Route: 065
     Dates: start: 20190222, end: 2022

REACTIONS (2)
  - Osteonecrosis of jaw [Recovering/Resolving]
  - Swelling face [Recovered/Resolved]

NARRATIVE: CASE EVENT DATE: 20211218
